FAERS Safety Report 13232297 (Version 1)
Quarter: 2017Q1

REPORT INFORMATION
  Report Type: Report from Study
  Country: None (occurrence: BR)
  Receive Date: 20170214
  Receipt Date: 20170214
  Transmission Date: 20170428
  Serious: Yes (Other)
  Sender: FDA-Public Use
  Company Number: BR-ABBVIE-17P-020-1872237-00

PATIENT
  Sex: Female

DRUGS (1)
  1. HUMIRA [Suspect]
     Active Substance: ADALIMUMAB
     Indication: CROHN^S DISEASE
     Route: 050
     Dates: start: 20140128

REACTIONS (5)
  - Wound haemorrhage [Unknown]
  - Skin tightness [Unknown]
  - Wound [Unknown]
  - Dementia Alzheimer^s type [Unknown]
  - Dry skin [Unknown]
